FAERS Safety Report 25141077 (Version 1)
Quarter: 2025Q1

REPORT INFORMATION
  Report Type: Spontaneous
  Country: US (occurrence: None)
  Receive Date: 20250328
  Receipt Date: 20250328
  Transmission Date: 20250409
  Serious: No
  Sender: FDA-CTU
  Company Number: None

PATIENT
  Age: 1 Year
  Sex: Female

DRUGS (1)
  1. TRACLEER [Suspect]
     Active Substance: BOSENTAN
     Indication: Heart disease congenital
     Dosage: FREQUENCY : TWICE A DAY;?
     Route: 048
     Dates: start: 20241023, end: 20250228

REACTIONS (11)
  - Dextrocardia [None]
  - Congenital tricuspid valve atresia [None]
  - Interruption of aortic arch [None]
  - Superior vena cava syndrome [None]
  - Exomphalos [None]
  - Post procedural complication [None]
  - Vocal cord paresis [None]
  - Pulmonary arterial pressure increased [None]
  - Pneumonia [None]
  - Pneumothorax [None]
  - Pleural effusion [None]

NARRATIVE: CASE EVENT DATE: 20250228
